FAERS Safety Report 5940665-6 (Version None)
Quarter: 2008Q4

REPORT INFORMATION
  Report Type: 
  Country: None (occurrence: None)
  Receive Date: 20081030
  Receipt Date: 20081014
  Transmission Date: 20090506
  Serious: Yes (Other)
  Sender: FDA-Public Use
  Company Number: PHHY2008JP23205

PATIENT
  Age: 41 Year
  Sex: Female

DRUGS (1)
  1. VISUDYNE [Suspect]
     Indication: CHOROIDAL NEOVASCULARISATION
     Dosage: 6 MG/M^2 DAILY IV
     Route: 042

REACTIONS (5)
  - CHOROIDAL NEOVASCULARISATION [None]
  - CONDITION AGGRAVATED [None]
  - RETINAL HAEMORRHAGE [None]
  - RETINAL OEDEMA [None]
  - VISUAL ACUITY REDUCED [None]
